FAERS Safety Report 19455977 (Version 3)
Quarter: 2021Q3

REPORT INFORMATION
  Report Type: Report from Study
  Country: None (occurrence: US)
  Receive Date: 20210624
  Receipt Date: 20210727
  Transmission Date: 20211014
  Serious: Yes (Hospitalization, Other)
  Sender: FDA-Public Use
  Company Number: US-ABBVIE-21K-163-3953785-00

PATIENT
  Sex: Male

DRUGS (2)
  1. IMBRUVICA [Suspect]
     Active Substance: IBRUTINIB
     Indication: CHRONIC LYMPHOCYTIC LEUKAEMIA
     Route: 048
     Dates: start: 20210305, end: 2021
  2. IMBRUVICA [Suspect]
     Active Substance: IBRUTINIB
     Route: 048
     Dates: start: 2021

REACTIONS (9)
  - Weight decreased [Recovering/Resolving]
  - Asthenia [Recovering/Resolving]
  - Mood altered [Not Recovered/Not Resolved]
  - White blood cell count abnormal [Unknown]
  - Pulmonary oedema [Recovering/Resolving]
  - Pneumonia aspiration [Recovering/Resolving]
  - Affective disorder [Not Recovered/Not Resolved]
  - Tremor [Recovering/Resolving]
  - Dysphagia [Recovering/Resolving]

NARRATIVE: CASE EVENT DATE: 2021
